FAERS Safety Report 6466013-3 (Version None)
Quarter: 2009Q4

REPORT INFORMATION
  Report Type: 
  Country: None (occurrence: None)
  Receive Date: 20091202
  Receipt Date: 20091120
  Transmission Date: 20100525
  Serious: Yes (Other)
  Sender: FDA-Public Use
  Company Number: DE-TEVA-216229ISR

PATIENT
  Sex: Male

DRUGS (1)
  1. GABAPENTIN [Suspect]
     Route: 048

REACTIONS (1)
  - BLOOD POTASSIUM INCREASED [None]
